FAERS Safety Report 25137724 (Version 1)
Quarter: 2025Q1

REPORT INFORMATION
  Report Type: Other
  Country: GB (occurrence: GB)
  Receive Date: 20250329
  Receipt Date: 20250329
  Transmission Date: 20250409
  Serious: Yes (Other)
  Sender: MACLEODS
  Company Number: GB-MHRA-TPP34866905C11327744YC1742287110995

PATIENT

DRUGS (7)
  1. ROSUVASTATIN [Suspect]
     Active Substance: ROSUVASTATIN
     Indication: Product used for unknown indication
     Route: 065
  2. CEPHRADINE [Concomitant]
     Active Substance: CEPHRADINE
     Indication: Product used for unknown indication
     Dosage: TAKE ONE DAILY AT NIGHT AS DIRECTED BY HOSPITAL
     Route: 065
     Dates: start: 20210112
  3. LOSARTAN [Concomitant]
     Active Substance: LOSARTAN
     Indication: Product used for unknown indication
     Dosage: TAKE ONE TABLET ONCE A DAY.
     Route: 065
     Dates: start: 20210112
  4. APIXABAN [Concomitant]
     Active Substance: APIXABAN
     Indication: Ill-defined disorder
     Dosage: TAKE ONE TABLET TWICE A DAY AS DIRECTED BY THE ...
     Route: 065
     Dates: start: 20220412
  5. ALLOPURINOL [Concomitant]
     Active Substance: ALLOPURINOL
     Indication: Ill-defined disorder
     Dosage: TAKE ONE TABLET ONCE A DAY.
     Route: 065
     Dates: start: 20230331
  6. ESTRADIOL [Concomitant]
     Active Substance: ESTRADIOL
     Indication: Product used for unknown indication
     Route: 065
     Dates: start: 20230502
  7. ATORVASTATIN [Concomitant]
     Active Substance: ATORVASTATIN
     Indication: Ill-defined disorder
     Dosage: TAKE ONE TABLET ONCE A DAY.
     Route: 065
     Dates: start: 20241105

REACTIONS (1)
  - Muscle spasms [Unknown]
